FAERS Safety Report 9525649 (Version 3)
Quarter: 2013Q4

REPORT INFORMATION
  Report Type: Report from Study
  Country: US (occurrence: US)
  Receive Date: 20130916
  Receipt Date: 20131030
  Transmission Date: 20140711
  Serious: Yes (Hospitalization)
  Sender: FDA-Public Use
  Company Number: US-SANOFI-AVENTIS-2013SA077608

PATIENT
  Sex: Female

DRUGS (1)
  1. AUBAGIO [Suspect]
     Dosage: TAKEN FROM: 3 MONTHS AGO
     Route: 048
     Dates: start: 20130706

REACTIONS (8)
  - Adverse event [Unknown]
  - Thirst [Unknown]
  - Muscle spasms [Unknown]
  - Vomiting [Unknown]
  - Pain [Unknown]
  - Hypertension [Unknown]
  - Diarrhoea [Unknown]
  - Blood alkaline phosphatase increased [Unknown]
